FAERS Safety Report 11072350 (Version 1)
Quarter: 2015Q2

REPORT INFORMATION
  Report Type: Spontaneous
  Country: DE (occurrence: DE)
  Receive Date: 20150428
  Receipt Date: 20150428
  Transmission Date: 20150821
  Serious: Yes (Hospitalization)
  Sender: FDA-Public Use
  Company Number: DE-ASTRAZENECA-2015SE36998

PATIENT
  Age: 73 Year
  Sex: Female

DRUGS (14)
  1. DULOXETIN [Suspect]
     Active Substance: DULOXETINE
     Route: 048
     Dates: start: 20090407, end: 20090413
  2. DULOXETIN [Suspect]
     Active Substance: DULOXETINE
     Route: 048
     Dates: start: 20090413, end: 20090420
  3. DIOVAN [Interacting]
     Active Substance: VALSARTAN
     Route: 048
  4. DECORTIN [Concomitant]
     Active Substance: PREDNISONE
     Route: 048
     Dates: start: 20090409, end: 20090411
  5. DECORTIN [Concomitant]
     Active Substance: PREDNISONE
     Route: 048
     Dates: start: 20090411, end: 20090416
  6. TAVOR [Interacting]
     Active Substance: LORAZEPAM
     Route: 048
     Dates: end: 20090415
  7. PANTOZOL [Concomitant]
     Active Substance: PANTOPRAZOLE SODIUM
     Route: 048
     Dates: start: 20090417
  8. MUSARIL [Concomitant]
     Route: 048
     Dates: end: 20090411
  9. CALCIUM CARBONATE. [Concomitant]
     Active Substance: CALCIUM CARBONATE
     Route: 048
     Dates: start: 20090417
  10. TRAMAL [Concomitant]
     Active Substance: TRAMADOL
     Route: 048
  11. BELOC-ZOK [Interacting]
     Active Substance: METOPROLOL SUCCINATE
     Route: 048
  12. DECORTIN [Concomitant]
     Active Substance: PREDNISONE
     Route: 048
     Dates: start: 20090416, end: 20090417
  13. NEURONTIN [Concomitant]
     Active Substance: GABAPENTIN
     Route: 048
  14. COTRIM [Concomitant]
     Active Substance: SULFAMETHOXAZOLE\TRIMETHOPRIM
     Route: 048
     Dates: start: 20090409, end: 20090411

REACTIONS (2)
  - Drug interaction [Unknown]
  - Hyponatraemia [Recovering/Resolving]

NARRATIVE: CASE EVENT DATE: 20090414
